FAERS Safety Report 6781155-0 (Version None)
Quarter: 2010Q2

REPORT INFORMATION
  Report Type: 
  Country: None (occurrence: None)
  Receive Date: 20100621
  Receipt Date: 20100520
  Transmission Date: 20101027
  Serious: No
  Sender: FDA-Public Use
  Company Number: US-BAYER-201015965BCC

PATIENT
  Age: 35 Year
  Sex: Male
  Weight: 75 kg

DRUGS (2)
  1. ALEVE (CAPLET) [Suspect]
     Indication: TOOTH ABSCESS
     Dosage: TOTAL DAILY DOSE: 6600 MG  UNIT DOSE: 220 MG
     Route: 048
     Dates: start: 20100518
  2. IBUPROFEN [Concomitant]
     Dates: start: 20100101

REACTIONS (2)
  - ABDOMINAL PAIN UPPER [None]
  - FAECES DISCOLOURED [None]
